FAERS Safety Report 13153498 (Version 1)
Quarter: 2017Q1

REPORT INFORMATION
  Report Type: Spontaneous
  Country: US (occurrence: US)
  Receive Date: 20170126
  Receipt Date: 20170126
  Transmission Date: 20170428
  Serious: Yes (Other)
  Sender: FDA-Public Use
  Company Number: PHEH2017US002303

PATIENT
  Sex: Female
  Weight: 69.39 kg

DRUGS (1)
  1. COSENTYX [Suspect]
     Active Substance: SECUKINUMAB
     Indication: PSORIASIS
     Dosage: 300 MG, QW4
     Route: 058
     Dates: start: 20160907

REACTIONS (3)
  - Ocular hyperaemia [Unknown]
  - Eye pruritus [Unknown]
  - Ear swelling [Unknown]

NARRATIVE: CASE EVENT DATE: 20161112
